FAERS Safety Report 9446967 (Version 1)
Quarter: 2013Q3

REPORT INFORMATION
  Report Type: Spontaneous
  Country: US (occurrence: US)
  Receive Date: 20130807
  Receipt Date: 20130807
  Transmission Date: 20140515
  Serious: No
  Sender: FDA-Public Use
  Company Number: US-AMGEN-USASP2013049373

PATIENT
  Age: 31 Year
  Sex: Female
  Weight: 71.2 kg

DRUGS (2)
  1. ENBREL [Suspect]
     Indication: PSORIATIC ARTHROPATHY
     Dosage: UNK
     Route: 065
     Dates: start: 20120215
  2. CLOBETASOL [Concomitant]
     Dosage: UNK
     Route: 061

REACTIONS (1)
  - Sinusitis [Recovered/Resolved]
